FAERS Safety Report 5376469-5 (Version None)
Quarter: 2007Q3

REPORT INFORMATION
  Report Type: 
  Country: None (occurrence: None)
  Receive Date: 20070702
  Receipt Date: 20070622
  Transmission Date: 20080115
  Serious: Yes (Other)
  Sender: FDA-Public Use
  Company Number: US-GENENTECH-243591

PATIENT

DRUGS (2)
  1. BEVACIZUMAB [Suspect]
     Indication: NON-SMALL CELL LUNG CANCER
  2. RADIATION [Concomitant]
     Indication: NON-SMALL CELL LUNG CANCER

REACTIONS (2)
  - DISEASE PROGRESSION [None]
  - RADIATION PNEUMONITIS [None]
